FAERS Safety Report 9116863 (Version 3)
Quarter: 2014Q2

REPORT INFORMATION
  Report Type: Spontaneous
  Country: CN (occurrence: CN)
  Receive Date: 20130225
  Receipt Date: 20140513
  Transmission Date: 20141212
  Serious: Yes (Hospitalization, Other)
  Sender: FDA-Public Use
  Company Number: PHHY2013CN017629

PATIENT
  Age: 85 Year
  Sex: Male

DRUGS (1)
  1. ACLASTA [Suspect]
     Indication: OSTEOPOROTIC FRACTURE
     Dosage: 5 MG
     Route: 042
     Dates: start: 20130218, end: 20130220

REACTIONS (5)
  - Atrial fibrillation [Recovered/Resolved]
  - Palpitations [Unknown]
  - Heart rate increased [Recovered/Resolved]
  - Angina pectoris [Recovering/Resolving]
  - Blood pressure increased [Unknown]
